FAERS Safety Report 22629483 (Version 1)
Quarter: 2023Q2

REPORT INFORMATION
  Report Type: Spontaneous
  Country: US (occurrence: None)
  Receive Date: 20230619
  Receipt Date: 20230619
  Transmission Date: 20230722
  Serious: No
  Sender: FDA-Public Use
  Company Number: None

PATIENT
  Sex: Male

DRUGS (11)
  1. ONDANSETRON [Suspect]
     Active Substance: ONDANSETRON
     Indication: Brain neoplasm malignant
     Dosage: OTHER FREQUENCY : Q6HOURS;?
     Route: 048
     Dates: start: 202208
  2. TEMOZOLOMIDE [Suspect]
     Active Substance: TEMOZOLOMIDE
     Indication: Brain neoplasm malignant
     Route: 048
  3. ALPRAZOLAM [Concomitant]
     Active Substance: ALPRAZOLAM
  4. AMLODIPINE [Concomitant]
     Active Substance: AMLODIPINE BESYLATE
  5. BACTRIM [Concomitant]
     Active Substance: SULFAMETHOXAZOLE\TRIMETHOPRIM
  6. DOCUSATE [Concomitant]
     Active Substance: DOCUSATE
  7. FOLIC ACID [Concomitant]
  8. IBUPROFEN [Concomitant]
     Active Substance: IBUPROFEN
  9. LEVETIRACETAM [Concomitant]
     Active Substance: LEVETIRACETAM
  10. METOPROLOL [Concomitant]
  11. MULTIVITAMIN SENNA [Concomitant]

REACTIONS (2)
  - Disease progression [None]
  - Therapy cessation [None]
